FAERS Safety Report 8306161-6 (Version None)
Quarter: 2012Q2

REPORT INFORMATION
  Report Type: 
  Country: None (occurrence: None)
  Receive Date: 20120423
  Receipt Date: 20120412
  Transmission Date: 20120825
  Serious: Yes (Hospitalization)
  Sender: FDA-Public Use
  Company Number: US-CELGENEUS-163-21880-12032323

PATIENT
  Sex: Male

DRUGS (5)
  1. HYDROCODONE BITARTRATE AND ACETAMINOPHEN [Concomitant]
     Route: 065
  2. FLUID [Concomitant]
     Route: 041
  3. REVLIMID [Suspect]
     Indication: MULTIPLE MYELOMA
     Dosage: 15 MILLIGRAM
     Route: 048
     Dates: start: 20110412
  4. VERAPAMIL [Concomitant]
     Route: 065
  5. ROCEPHIN [Concomitant]
     Indication: URINARY TRACT INFECTION
     Route: 065

REACTIONS (4)
  - THROMBOCYTOPENIA [None]
  - NEPHROLITHIASIS [None]
  - CALCULUS URINARY [None]
  - BLOOD BILIRUBIN INCREASED [None]
